FAERS Safety Report 13530647 (Version 1)
Quarter: 2017Q2

REPORT INFORMATION
  Report Type: Spontaneous
  Country: US (occurrence: US)
  Receive Date: 20170508
  Receipt Date: 20170508
  Transmission Date: 20170830
  Serious: Yes (Hospitalization)
  Sender: FDA-Public Use
  Company Number: None

PATIENT
  Age: 71 Year
  Sex: Male

DRUGS (5)
  1. MEYERS COCKTAILS [Concomitant]
  2. ASCORBIC ACID INFUSION [Concomitant]
  3. CURCUMIN [Suspect]
     Active Substance: CURCUMIN
     Indication: C-REACTIVE PROTEIN INCREASED
     Dosage: ?          OTHER FREQUENCY:TWICE;?
     Route: 041
     Dates: start: 20170424, end: 20170504
  4. CURCUMIN [Suspect]
     Active Substance: CURCUMIN
     Indication: RED BLOOD CELL SEDIMENTATION RATE INCREASED
     Dosage: ?          OTHER FREQUENCY:TWICE;?
     Route: 041
     Dates: start: 20170424, end: 20170504
  5. CURCUMIN [Suspect]
     Active Substance: CURCUMIN
     Indication: INFLAMMATION
     Dosage: ?          OTHER FREQUENCY:TWICE;?
     Route: 041
     Dates: start: 20170424, end: 20170504

REACTIONS (2)
  - Anaphylactic reaction [None]
  - Infusion related reaction [None]

NARRATIVE: CASE EVENT DATE: 20170501
